FAERS Safety Report 9475617 (Version 2)
Quarter: 2013Q3

REPORT INFORMATION
  Report Type: Spontaneous
  Country: US (occurrence: None)
  Receive Date: 20130808
  Receipt Date: 20130813
  Transmission Date: 20140515
  Serious: Yes (Hospitalization)
  Sender: FDA-Public Use
  Company Number: 2011029783

PATIENT
  Age: 61 Year
  Sex: Female
  Weight: 65.77 kg

DRUGS (1)
  1. HIZENTRA [Suspect]
     Dosage: INFUSED OVER ONE TO TWO HOURS AT ROOM TEMPERATURE
     Route: 058
     Dates: start: 20110708

REACTIONS (3)
  - Photosensitivity reaction [None]
  - Butterfly rash [None]
  - Salmonellosis [None]
